FAERS Safety Report 6432679-7 (Version None)
Quarter: 2009Q4

REPORT INFORMATION
  Report Type: 
  Country: None (occurrence: None)
  Receive Date: 20091109
  Receipt Date: 20091104
  Transmission Date: 20100525
  Serious: Yes (Life-Threatening, Hospitalization)
  Sender: FDA-Public Use
  Company Number: GXKR2009DE12115

PATIENT
  Age: 23 Year
  Sex: Female

DRUGS (1)
  1. MINOCYCLINE HCL [Suspect]
     Indication: ROSACEA
     Dosage: 50 MG, BID
     Route: 048
     Dates: start: 20090527, end: 20090625

REACTIONS (11)
  - ACUTE HEPATIC FAILURE [None]
  - ASCITES [None]
  - BLOOD IMMUNOGLOBULIN E INCREASED [None]
  - DRUG RASH WITH EOSINOPHILIA AND SYSTEMIC SYMPTOMS [None]
  - EOSINOPHILIA [None]
  - LYMPHADENOPATHY [None]
  - PERICARDIAL EFFUSION [None]
  - PLEURAL EFFUSION [None]
  - POLYSEROSITIS [None]
  - RASH MACULO-PAPULAR [None]
  - T-LYMPHOCYTE COUNT INCREASED [None]
